FAERS Safety Report 4763529-2 (Version None)
Quarter: 2005Q3

REPORT INFORMATION
  Report Type: 
  Country: None (occurrence: None)
  Receive Date: 20050826
  Receipt Date: 20050211
  Transmission Date: 20060218
  Serious: Yes (Death)
  Sender: FDA-Public Use
  Company Number: USA-2003-0011107

PATIENT
  Age: 25 Year
  Sex: Male

DRUGS (6)
  1. OXYCONTIN [Suspect]
  2. HYDROCODONE BITARTRATE [Suspect]
  3. METAMFETAMINE (METAMFETAMINE) [Suspect]
  4. COCAINE (COCAINE) [Suspect]
  5. CARISOPRODOL [Suspect]
  6. BENZODIAZEPINE DERIVATIVES [Suspect]

REACTIONS (1)
  - MULTIPLE DRUG OVERDOSE [None]
